FAERS Safety Report 22830465 (Version 2)
Quarter: 2023Q4

REPORT INFORMATION
  Report Type: Spontaneous
  Country: US (occurrence: None)
  Receive Date: 20230817
  Receipt Date: 20231003
  Transmission Date: 20240110
  Serious: No
  Sender: FDA-Public Use
  Company Number: 2023A184705

PATIENT

DRUGS (1)
  1. BYDUREON BCISE [Suspect]
     Active Substance: EXENATIDE
     Dosage: 2.0MG UNKNOWN

REACTIONS (7)
  - Memory impairment [Unknown]
  - Hallucination [Unknown]
  - COVID-19 [Unknown]
  - Cough [Unknown]
  - Cerebral disorder [Unknown]
  - Incorrect dose administered by device [Unknown]
  - Device delivery system issue [Unknown]
